FAERS Safety Report 17970559 (Version 3)
Quarter: 2020Q4

REPORT INFORMATION
  Report Type: Spontaneous
  Country: US (occurrence: US)
  Receive Date: 20200701
  Receipt Date: 20201211
  Transmission Date: 20210113
  Serious: No
  Sender: FDA-Public Use
  Company Number: US-PFIZER INC-2020252883

PATIENT
  Age: 50 Year
  Sex: Female

DRUGS (2)
  1. LYRICA [Suspect]
     Active Substance: PREGABALIN
     Dosage: UNK, 1X/DAY (TAKING ONE TIME A DAY INSTEAD OF THREE)
  2. LYRICA [Suspect]
     Active Substance: PREGABALIN
     Dosage: 2 DF, 3X/DAY(LYRICA 150, 2 CAPS, THREE TIMES A DAY.^)

REACTIONS (5)
  - Overdose [Unknown]
  - Intentional product misuse [Unknown]
  - Memory impairment [Unknown]
  - Confusional state [Unknown]
  - Hypoacusis [Unknown]
